FAERS Safety Report 24171920 (Version 1)
Quarter: 2024Q3

REPORT INFORMATION
  Report Type: Report from Study
  Country: CA (occurrence: CA)
  Receive Date: 20240805
  Receipt Date: 20240805
  Transmission Date: 20241016
  Serious: Yes (Other)
  Sender: ABBVIE
  Company Number: CA-ABBVIE-5862399

PATIENT
  Age: 30 Year
  Sex: Female

DRUGS (2)
  1. UBRELVY [Suspect]
     Active Substance: UBROGEPANT
     Indication: Product used for unknown indication
     Route: 048
  2. BOTOX [Suspect]
     Active Substance: ONABOTULINUMTOXINA
     Indication: Migraine
     Dosage: TIME INTERVAL: AS NECESSARY: FREQUENCY: EVERY 3 MONTHS
     Route: 030

REACTIONS (7)
  - Fall [Recovered/Resolved]
  - Pain [Unknown]
  - Jaw fracture [Recovering/Resolving]
  - Migraine [Not Recovered/Not Resolved]
  - Tooth fracture [Recovering/Resolving]
  - Jaw fracture [Recovering/Resolving]
  - Therapeutic product effect incomplete [Unknown]

NARRATIVE: CASE EVENT DATE: 20170101
